FAERS Safety Report 9949573 (Version 1)
Quarter: 2014Q1

REPORT INFORMATION
  Report Type: Spontaneous
  Country: US (occurrence: None)
  Receive Date: 20140122
  Receipt Date: 20140122
  Transmission Date: 20141002
  Serious: Yes (Other)
  Sender: FDA-Public Use
  Company Number: AEGR000199

PATIENT
  Age: 35 Year
  Sex: Female
  Weight: 106.1 kg

DRUGS (12)
  1. JUXTAPID [Suspect]
     Indication: TYPE IIA HYPERLIPIDAEMIA
     Route: 048
     Dates: start: 20131010
  2. PLAVIX (CLOPIDOGREL BISULFATE) (CLOPIDOGREL BISULFATE) [Concomitant]
  3. COREG (CARVEDILOL) [Concomitant]
  4. AMLODIPINE (AMLODIPINE MALEATE) [Concomitant]
  5. AMBIEN (ZOLPIDEM TARTRATE) [Concomitant]
  6. ZETIA (EZETIMIBE) [Concomitant]
  7. LISINOPRIL (LISINOPRIL) [Concomitant]
  8. CLONIDINE (CLONIDINE HYDROCHLORIDE) [Concomitant]
  9. ATORVASTATIN (ATORVASTATIN) [Concomitant]
  10. GLIPIRIDE (GLIMEPIRIDE) [Concomitant]
  11. FUROSEMIDE (FUROSEMIDE) [Concomitant]
  12. AMOXICILLIN (AMOXICILLIN TRIHYDRATE) [Concomitant]

REACTIONS (2)
  - Abdominal discomfort [None]
  - Nausea [None]
